FAERS Safety Report 9432424 (Version 1)
Quarter: 2013Q3

REPORT INFORMATION
  Report Type: Spontaneous
  Country: JP (occurrence: JP)
  Receive Date: 20130729
  Receipt Date: 20130729
  Transmission Date: 20140515
  Serious: Yes (Death, Other)
  Sender: FDA-Public Use
  Company Number: 2013212181

PATIENT
  Age: 55 Year
  Sex: Male

DRUGS (6)
  1. IDAMYCIN [Suspect]
     Indication: CHRONIC MYELOID LEUKAEMIA
     Route: 042
     Dates: start: 20110826, end: 20110828
  2. FRAGMIN (DALTEPARIN SODIUM) SOLUTION FOR INJECTION [Suspect]
  3. SPRYCEL (DASATINIB) [Suspect]
     Indication: CHRONIC MYELOID LEUKAEMIA
     Dosage: ONE DOSAGE DAILY.
     Route: 048
     Dates: start: 20110712, end: 20110802
  4. CYLOCIDE [Suspect]
     Indication: CHRONIC MYELOID LEUKAEMIA
     Route: 042
     Dates: start: 20110826, end: 20110901
  5. METHYLPREDNISOLONE SODIUM SUCCINATE (METHYLPREDNISOLONE SODIUM SUCCINATE) [Concomitant]
  6. MORPHINE HYDROCHLORIDE (MORPHINE HYDROCHLORIDE) [Concomitant]

REACTIONS (7)
  - Haemothorax [None]
  - Pleural effusion [None]
  - Neutrophil count decreased [None]
  - Neutropenic infection [None]
  - Respiratory failure [None]
  - Febrile neutropenia [None]
  - Bronchiolitis [None]
